FAERS Safety Report 4555879-X (Version None)
Quarter: 2005Q1

REPORT INFORMATION
  Report Type: 
  Country: None (occurrence: None)
  Receive Date: 20050119
  Receipt Date: 20040911
  Transmission Date: 20050727
  Serious: Yes (Other)
  Sender: FDA-Public Use
  Company Number: US-ROCHE-380431

PATIENT
  Age: 53 Year
  Sex: Male

DRUGS (2)
  1. PEGASYS [Suspect]
     Indication: HEPATITIS C
     Dosage: ROUTE: INJ
     Route: 050
     Dates: start: 20031115, end: 20041109
  2. COPEGUS [Suspect]
     Indication: HEPATITIS C
     Route: 048
     Dates: start: 20031115, end: 20041109

REACTIONS (9)
  - COUGH [None]
  - DEAFNESS [None]
  - DRUG INEFFECTIVE [None]
  - EAR DISCOMFORT [None]
  - NAUSEA [None]
  - THERAPY NON-RESPONDER [None]
  - TINNITUS [None]
  - VIRAL LOAD INCREASED [None]
  - WHITE BLOOD CELL COUNT DECREASED [None]
